FAERS Safety Report 5163597-2 (Version None)
Quarter: 2006Q4

REPORT INFORMATION
  Report Type: 
  Country: None (occurrence: None)
  Receive Date: 20061128
  Receipt Date: 20061128
  Transmission Date: 20070319
  Serious: No
  Sender: FDA-Public Use
  Company Number: None

PATIENT
  Sex: Male

DRUGS (1)
  1. PREDNISONE [Suspect]
     Indication: BONE TUBERCULOSIS
     Dosage: 20 MG  DAILY  P.O.
     Route: 048
     Dates: start: 20061106, end: 20061110

REACTIONS (2)
  - DRUG INEFFECTIVE [None]
  - FALL [None]
